APPROVED DRUG PRODUCT: FENTANYL-75
Active Ingredient: FENTANYL
Strength: 75MCG/HR
Dosage Form/Route: FILM, EXTENDED RELEASE;TRANSDERMAL
Application: A077051 | Product #003
Applicant: LAVIPHARM LABORATORIES INC
Approved: Aug 4, 2006 | RLD: No | RS: No | Type: DISCN